FAERS Safety Report 19200525 (Version 2)
Quarter: 2021Q4

REPORT INFORMATION
  Report Type: Spontaneous
  Country: US (occurrence: US)
  Receive Date: 20210430
  Receipt Date: 20211110
  Transmission Date: 20220303
  Serious: Yes (Life-Threatening, Hospitalization)
  Sender: FDA-Public Use
  Company Number: US-MYLANLABS-2021M1025243

PATIENT
  Age: 14 Year
  Sex: Female

DRUGS (4)
  1. DIPHENHYDRAMINE [Suspect]
     Active Substance: DIPHENHYDRAMINE
     Indication: Product used for unknown indication
     Dosage: PATIENT INGESTED OVER 100 DIPHENHYDRAMINE (25MG) TABLETS
     Route: 048
  2. LORAZEPAM [Suspect]
     Active Substance: LORAZEPAM
     Indication: Anticholinergic syndrome
     Dosage: 10 MILLIGRAM BEFORE ADMISSION
     Route: 065
  3. LORAZEPAM [Suspect]
     Active Substance: LORAZEPAM
     Dosage: 6 MILLIGRAM IN THE EMERGENCY DEPARTMENT
     Route: 065
  4. ACETAMINOPHEN [Suspect]
     Active Substance: ACETAMINOPHEN
     Indication: Product used for unknown indication
     Route: 048

REACTIONS (13)
  - Anticholinergic syndrome [Recovered/Resolved]
  - Drug ineffective for unapproved indication [Unknown]
  - Off label use [Unknown]
  - Electrocardiogram QT prolonged [Recovered/Resolved]
  - Agitation [Recovered/Resolved]
  - Tachycardia [Recovered/Resolved]
  - Hypertension [Recovered/Resolved]
  - Mydriasis [Recovered/Resolved]
  - Dry skin [Recovered/Resolved]
  - Hallucination [Recovered/Resolved]
  - Speech disorder [Recovered/Resolved]
  - Toxicity to various agents [Recovered/Resolved]
  - Intentional overdose [Recovered/Resolved]
